FAERS Safety Report 6292465-8 (Version None)
Quarter: 2009Q3

REPORT INFORMATION
  Report Type: 
  Country: None (occurrence: None)
  Receive Date: 20090731
  Receipt Date: 20090721
  Transmission Date: 20100115
  Serious: Yes (Life-Threatening)
  Sender: FDA-Public Use
  Company Number: DK-PFIZER INC-2009243856

PATIENT
  Age: 21 Year

DRUGS (1)
  1. DIFLUCAN [Suspect]
     Indication: VULVOVAGINAL MYCOTIC INFECTION
     Dosage: 150 MG, UNK
     Route: 048
     Dates: start: 20090612, end: 20090626

REACTIONS (6)
  - BURNING SENSATION [None]
  - MALAISE [None]
  - NAUSEA [None]
  - OCULAR HYPERAEMIA [None]
  - PYREXIA [None]
  - SWOLLEN TONGUE [None]
